FAERS Safety Report 9282855 (Version 2)
Quarter: 2013Q4

REPORT INFORMATION
  Report Type: Spontaneous
  Country: US (occurrence: US)
  Receive Date: 20130510
  Receipt Date: 20131230
  Transmission Date: 20140711
  Serious: Yes (Hospitalization)
  Sender: FDA-Public Use
  Company Number: US-BAYER-2013-058253

PATIENT
  Age: 24 Year
  Sex: Female

DRUGS (7)
  1. YAZ [Suspect]
     Dosage: UNK
     Dates: start: 2008, end: 2009
  2. YAZ [Suspect]
     Dosage: UNK
     Dates: start: 2006
  3. YASMIN [Suspect]
     Dosage: UNK
     Dates: start: 2008, end: 2009
  4. YASMIN [Suspect]
     Dosage: UNK
     Dates: start: 2006
  5. ASA [Concomitant]
     Dosage: 325 MG, UNK
     Route: 048
  6. NTG [Concomitant]
     Dosage: 1 TIME
  7. MORPHINE [Concomitant]

REACTIONS (8)
  - Myocardial infarction [None]
  - Injury [None]
  - Pain [None]
  - General physical health deterioration [None]
  - Abdominal pain [None]
  - Emotional distress [None]
  - Anxiety [None]
  - Pain [None]
